FAERS Safety Report 5882583-8 (Version None)
Quarter: 2008Q3

REPORT INFORMATION
  Report Type: 
  Country: None (occurrence: None)
  Receive Date: 20080913
  Receipt Date: 20080806
  Transmission Date: 20090109
  Serious: No
  Sender: FDA-Public Use
  Company Number: US-ABBOTT-08P-163-0468931-00

PATIENT
  Sex: Female

DRUGS (1)
  1. HUMIRA [Suspect]
     Indication: PSORIASIS
     Dates: start: 20080531

REACTIONS (5)
  - DRUG INEFFECTIVE [None]
  - PAIN IN EXTREMITY [None]
  - PSORIASIS [None]
  - SKIN FISSURES [None]
  - SKIN HAEMORRHAGE [None]
